FAERS Safety Report 16428310 (Version 3)
Quarter: 2019Q3

REPORT INFORMATION
  Report Type: Report from Study
  Country: US (occurrence: US)
  Receive Date: 20190613
  Receipt Date: 20190826
  Transmission Date: 20191004
  Serious: Yes (Hospitalization)
  Sender: FDA-Public Use
  Company Number: US-ACTELION-A-NJ2018-175385

PATIENT
  Age: 45 Year
  Sex: Male
  Weight: 78.46 kg

DRUGS (2)
  1. UPTRAVI [Suspect]
     Active Substance: SELEXIPAG
     Indication: PULMONARY HYPERTENSION
     Dosage: 200 MCG, BID
     Route: 048
  2. OPSUMIT [Suspect]
     Active Substance: MACITENTAN
     Indication: PULMONARY HYPERTENSION
     Dosage: 10 MG, QD
     Route: 048
     Dates: start: 20141020

REACTIONS (6)
  - Bone pain [Unknown]
  - Road traffic accident [Unknown]
  - Hospitalisation [Unknown]
  - Blood uric acid increased [Unknown]
  - Pain [Unknown]
  - Joint injury [Unknown]

NARRATIVE: CASE EVENT DATE: 20190509
